FAERS Safety Report 4803341-9 (Version None)
Quarter: 2005Q4

REPORT INFORMATION
  Report Type: 
  Country: None (occurrence: None)
  Receive Date: 20051013
  Receipt Date: 20050928
  Transmission Date: 20060501
  Serious: Yes (Other)
  Sender: FDA-Public Use
  Company Number: 2005PL000075

PATIENT
  Age: 51 Year
  Sex: Female

DRUGS (1)
  1. TRANDATE [Suspect]
     Indication: HYPERTENSION
     Dosage: PO
     Route: 048
     Dates: start: 20020101

REACTIONS (6)
  - HEPATIC ENCEPHALOPATHY [None]
  - HEPATIC FAILURE [None]
  - HEPATIC NECROSIS [None]
  - HEPATITIS ACUTE [None]
  - HEPATORENAL SYNDROME [None]
  - LIVER TRANSPLANT [None]
